FAERS Safety Report 9270602 (Version 3)
Quarter: 2013Q2

REPORT INFORMATION
  Report Type: Spontaneous
  Country: DE (occurrence: DE)
  Receive Date: 20130506
  Receipt Date: 20130611
  Transmission Date: 20140414
  Serious: Yes (Other)
  Sender: FDA-Public Use
  Company Number: DE-AMGEN-DEUSP2013030325

PATIENT
  Age: 71 Year
  Sex: Male
  Weight: 82 kg

DRUGS (11)
  1. VECTIBIX [Suspect]
     Indication: COLORECTAL CANCER METASTATIC
     Dosage: 492 MG, 2
     Route: 042
     Dates: start: 20130128, end: 20130213
  2. OXALIPLATIN [Concomitant]
     Indication: COLORECTAL CANCER METASTATIC
     Dosage: 160 MG, D1
     Route: 042
     Dates: start: 20130128, end: 20130213
  3. OXALIPLATIN [Concomitant]
     Indication: METASTASES TO LIVER
  4. LEUCOVORIN                         /00566701/ [Concomitant]
     Indication: COLORECTAL CANCER METASTATIC
     Dosage: 390 MG, D1 D2
     Route: 042
     Dates: start: 20130128, end: 20130213
  5. LEUCOVORIN                         /00566701/ [Concomitant]
     Indication: METASTASES TO LIVER
  6. 5-FLUOROURACIL                     /00098801/ [Concomitant]
     Indication: COLORECTAL CANCER METASTATIC
     Dosage: 780MG AND 1160MG, (D1+2 AND D1+2)
     Route: 042
     Dates: start: 20130128, end: 20130213
  7. 5-FLUOROURACIL                     /00098801/ [Concomitant]
     Indication: METASTASES TO LIVER
  8. AMLODIPIN                          /00972401/ [Concomitant]
     Indication: HYPERTENSION
     Dosage: 10 MG, 1X1/2, LONG TERM MEDICATION
  9. VALSARTAN [Concomitant]
     Indication: HYPERTENSION
     Dosage: 160/25, 1X1, LONG TERM MEDICATION
  10. BELOC ZOK [Concomitant]
     Indication: HYPERTENSION
     Dosage: 47.5 MG, 1X1, LONG TERM MEDICATION
  11. DOXYCYCLINE [Concomitant]
     Dosage: 100 MG, 2X1
     Dates: start: 20130127, end: 20130218

REACTIONS (5)
  - Skin toxicity [Recovered/Resolved]
  - Purpura [Recovered/Resolved]
  - Dermatitis acneiform [Recovered/Resolved]
  - Pain of skin [Recovered/Resolved]
  - Skin ulcer [Recovered/Resolved]
